FAERS Safety Report 18257741 (Version 1)
Quarter: 2020Q3

REPORT INFORMATION
  Report Type: Spontaneous
  Country: US (occurrence: US)
  Receive Date: 20200911
  Receipt Date: 20200911
  Transmission Date: 20201103
  Serious: Yes (Hospitalization)
  Sender: FDA-Public Use
  Company Number: None

PATIENT
  Age: 79 Year
  Sex: Female
  Weight: 81.6 kg

DRUGS (3)
  1. VELCADE [Suspect]
     Active Substance: BORTEZOMIB
     Dates: end: 20150817
  2. DEXAMETHASONE. [Suspect]
     Active Substance: DEXAMETHASONE
     Dates: end: 20151222
  3. LENALIDOMIDE (CC?5013) [Suspect]
     Active Substance: LENALIDOMIDE
     Dates: end: 20181226

REACTIONS (4)
  - Endometrial adenocarcinoma [None]
  - Invasive ductal breast carcinoma [None]
  - Triple negative breast cancer [None]
  - Uterine cervix stenosis [None]

NARRATIVE: CASE EVENT DATE: 20200814
